FAERS Safety Report 5811787-5 (Version None)
Quarter: 2008Q3

REPORT INFORMATION
  Report Type: 
  Country: None (occurrence: None)
  Receive Date: 20080715
  Receipt Date: 20080715
  Transmission Date: 20090109
  Serious: Yes (Death)
  Sender: FDA-Public Use
  Company Number: None

PATIENT
  Age: 76 Year
  Sex: Female
  Weight: 61.2356 kg

DRUGS (7)
  1. TAXOTERE [Suspect]
     Indication: BREAST CANCER
     Dosage: 124MG -75MG/M2- Q 2 WEEKS IV
     Route: 042
     Dates: start: 20080317, end: 20080512
  2. CYTOXAN [Suspect]
     Indication: BREAST CANCER
     Dosage: 990MG-600MG/M2- Q 2 WEEKS IV
     Route: 042
     Dates: start: 20080317, end: 20080512
  3. ALOXI [Concomitant]
  4. DEXAMETHASONE [Concomitant]
  5. NEULASTA [Concomitant]
  6. EMEND [Concomitant]
  7. ARANESP [Concomitant]

REACTIONS (8)
  - BRAIN NATRIURETIC PEPTIDE INCREASED [None]
  - DYSPNOEA [None]
  - HYPOXIA [None]
  - INTERSTITIAL LUNG DISEASE [None]
  - LUNG INFILTRATION [None]
  - MENTAL STATUS CHANGES [None]
  - PYREXIA [None]
  - RESPIRATORY DISTRESS [None]
